FAERS Safety Report 5154595-3 (Version None)
Quarter: 2006Q4

REPORT INFORMATION
  Report Type: 
  Country: None (occurrence: None)
  Receive Date: 20061114
  Receipt Date: 20061027
  Transmission Date: 20070319
  Serious: Yes (Hospitalization)
  Sender: FDA-Public Use
  Company Number: 2006BL006273

PATIENT
  Age: 80 Year
  Sex: Male

DRUGS (11)
  1. PREDNISOLONE SODIUM PHOSPHATE [Suspect]
     Indication: DRUG USE FOR UNKNOWN INDICATION
     Dosage: 15 MILLIGRAMSP DAILY
     Dates: end: 20060722
  2. RISEDRONATE SODIUM [Suspect]
     Dosage: 35 MILLIGRAMSW; WEEKLY; ORAL
     Route: 048
     Dates: end: 20060722
  3. WARFARIN SODIUM [Suspect]
     Indication: ATRIAL FIBRILLATION
     Dates: end: 20060722
  4. DIGOXIN [Concomitant]
  5. FERROUS SULFATE TAB [Concomitant]
  6. IPRATROPIUM BROMIDE [Concomitant]
  7. MOVICOL [Concomitant]
  8. OMEPRAZOLE [Concomitant]
  9. SALBUTAMOL [Concomitant]
  10. UNIPHYLLIN   MUNDIPHARMA [Concomitant]
  11. XALATAN [Concomitant]

REACTIONS (3)
  - DRUG INTERACTION [None]
  - HAEMATEMESIS [None]
  - OESOPHAGEAL ULCER [None]
